FAERS Safety Report 8913791 (Version 1)
Quarter: 2012Q4

REPORT INFORMATION
  Report Type: Spontaneous
  Country: US (occurrence: None)
  Receive Date: 20121114
  Receipt Date: 20121114
  Transmission Date: 20130627
  Serious: Yes (Life-Threatening)
  Sender: FDA-Public Use
  Company Number: US-LHC-2012035

PATIENT
  Age: 75 Year
  Sex: Male

DRUGS (1)
  1. CARBON DIOXIDE [Suspect]
     Indication: ANGIOGRAM

REACTIONS (8)
  - Abdominal pain lower [None]
  - Post procedural complication [None]
  - Vomiting [None]
  - Colitis ischaemic [None]
  - Suprapubic pain [None]
  - White blood cell count increased [None]
  - Shift to the left [None]
  - Computerised tomogram abnormal [None]
